FAERS Safety Report 15546675 (Version 1)
Quarter: 2018Q4

REPORT INFORMATION
  Report Type: Spontaneous
  Country: US (occurrence: US)
  Receive Date: 20181023
  Receipt Date: 20181023
  Transmission Date: 20190205
  Serious: No
  Sender: FDA-Public Use
  Company Number: None

PATIENT
  Age: 13 Year
  Sex: Female
  Weight: 65.25 kg

DRUGS (3)
  1. CLARITIN [Concomitant]
     Active Substance: LORATADINE
  2. TECHNETIUM 99M MDP 13.2 MCI [Suspect]
     Active Substance: TECHNETIUM TC-99M MEDRONATE
     Indication: BONE SCAN
     Route: 042
     Dates: start: 20181019, end: 20181019
  3. VENTOLIN [Concomitant]
     Active Substance: ALBUTEROL SULFATE

REACTIONS (8)
  - Vomiting [None]
  - Adverse drug reaction [None]
  - Chills [None]
  - Dizziness [None]
  - Asthenia [None]
  - Headache [None]
  - Dysgeusia [None]
  - Abdominal pain upper [None]

NARRATIVE: CASE EVENT DATE: 20181019
